FAERS Safety Report 4774034-1 (Version None)
Quarter: 2005Q3

REPORT INFORMATION
  Report Type: 
  Country: None (occurrence: None)
  Receive Date: 20050920
  Receipt Date: 20050909
  Transmission Date: 20060218
  Serious: Yes (Hospitalization)
  Sender: FDA-Public Use
  Company Number: GB-BRISTOL-MYERS SQUIBB COMPANY-13105556

PATIENT
  Age: 64 Year
  Sex: Female

DRUGS (3)
  1. CISPLATIN [Suspect]
     Indication: BLADDER CANCER
     Dates: start: 20031014, end: 20031126
  2. PACLITAXEL [Suspect]
     Indication: BLADDER CANCER
     Dates: start: 20031014, end: 20031204
  3. GEMCITABINE [Suspect]
     Indication: BLADDER CANCER
     Dates: start: 20031014, end: 20031204

REACTIONS (1)
  - PULMONARY FIBROSIS [None]
